FAERS Safety Report 10018121 (Version 1)
Quarter: 2014Q1

REPORT INFORMATION
  Report Type: Spontaneous
  Country: US (occurrence: US)
  Receive Date: 20140318
  Receipt Date: 20140318
  Transmission Date: 20141002
  Serious: No
  Sender: FDA-Public Use
  Company Number: US-BRISTOL-MYERS SQUIBB COMPANY-18998310

PATIENT
  Sex: 0
  Weight: 95.24 kg

DRUGS (1)
  1. ERBITUX [Suspect]
     Dates: start: 20130422

REACTIONS (2)
  - Swelling face [Unknown]
  - Rash [Recovering/Resolving]
